FAERS Safety Report 4845421-8 (Version None)
Quarter: 2005Q4

REPORT INFORMATION
  Report Type: 
  Country: None (occurrence: None)
  Receive Date: 20051129
  Receipt Date: 20051117
  Transmission Date: 20060501
  Serious: Yes (Hospitalization)
  Sender: FDA-Public Use
  Company Number: 2005158730

PATIENT

DRUGS (8)
  1. CABERGOLINE [Suspect]
     Indication: PARKINSON'S DISEASE
     Dosage: ORAL
     Route: 048
     Dates: end: 20051116
  2. CABERGOLINE [Suspect]
     Indication: PARKINSON'S DISEASE
     Dosage: ORAL
     Route: 048
     Dates: start: 20051117
  3. SETIPTILINE (SETIPTILINE) [Concomitant]
  4. FLUVOXAMINE MALEATE [Concomitant]
  5. DROXIDOPA (DROXIDOPA) [Concomitant]
  6. LEVODOPA-CARBIDOPA (CARBIDOPA, LEVODOPA) [Concomitant]
  7. BROMOCRIPTINE MESYLATE [Concomitant]
  8. MIDODRINE HYDROCHLORIDE (MIDODRINE HYDROCHLORIDE) [Concomitant]

REACTIONS (4)
  - BLOOD CREATINE PHOSPHOKINASE INCREASED [None]
  - NEUROLEPTIC MALIGNANT SYNDROME [None]
  - SHOCK [None]
  - TREMOR [None]
